FAERS Safety Report 17258376 (Version 2)
Quarter: 2020Q4

REPORT INFORMATION
  Report Type: Spontaneous
  Country: US (occurrence: US)
  Receive Date: 20200110
  Receipt Date: 20201125
  Transmission Date: 20210113
  Serious: Yes (Hospitalization)
  Sender: FDA-Public Use
  Company Number: US-PFIZER INC-2019199107

PATIENT
  Age: 47 Year
  Sex: Male
  Weight: 70.75 kg

DRUGS (2)
  1. RAPAMUNE [Suspect]
     Active Substance: SIROLIMUS
     Dosage: 2 MG, DAILY (0.5 MG-30 DAYS SUPPLY-TAKE 4 TABLETS DAILY-QTY OF 124)
  2. RAPAMUNE [Suspect]
     Active Substance: SIROLIMUS
     Indication: RENAL TRANSPLANT
     Dosage: 1 MG, 2X/DAY
     Route: 048

REACTIONS (2)
  - Off label use [Unknown]
  - Illness [Unknown]
